FAERS Safety Report 17147755 (Version 1)
Quarter: 2019Q4

REPORT INFORMATION
  Report Type: Report from Study
  Country: US (occurrence: US)
  Receive Date: 20191212
  Receipt Date: 20191212
  Transmission Date: 20200122
  Serious: Yes (Hospitalization, Disabling, Other)
  Sender: FDA-Public Use
  Company Number: US-SA-2016SA207408

PATIENT
  Age: 36 Year
  Sex: Male

DRUGS (18)
  1. ALEMTUZUMAB [Suspect]
     Active Substance: ALEMTUZUMAB
     Indication: RELAPSING-REMITTING MULTIPLE SCLEROSIS
     Dosage: 12 MG,QD
     Route: 041
     Dates: start: 20160711, end: 20160715
  2. PANTOPRAZOLE SODIUM. [Concomitant]
     Active Substance: PANTOPRAZOLE SODIUM
     Dosage: 40 MG, QD
     Route: 048
  3. NITROGLYCERIN. [Concomitant]
     Active Substance: NITROGLYCERIN
     Indication: PREMEDICATION
     Dosage: UNK UNK, UNK
     Route: 065
  4. OCREVUS [Concomitant]
     Active Substance: OCRELIZUMAB
     Dosage: 300 MG (INDCUTION DOSE: 300 MG FOLLOWED TWO WEEKS LATER BY A SECOND 300 MG IV IFNUSION; 2 VIALS; MAI
     Route: 042
  5. UBIQUINOL [Concomitant]
     Active Substance: UBIQUINOL
     Dosage: 300 MG, QD (AS DIRECTED)
     Route: 048
  6. GABAPENTIN. [Concomitant]
     Active Substance: GABAPENTIN
     Dosage: 300 MG; QID (1 CAP QAM, 1 CAP MIDDAY, 2 CAPS QHS)
     Route: 048
  7. LASIX [Concomitant]
     Active Substance: FUROSEMIDE
     Indication: PREMEDICATION
     Dosage: UNK UNK, UNK
     Route: 065
  8. VITAMIN D3 [Concomitant]
     Active Substance: CHOLECALCIFEROL
     Dosage: 5000 U, QD
     Route: 048
  9. EPINEPHRINE. [Concomitant]
     Active Substance: EPINEPHRINE
     Indication: PREMEDICATION
     Dosage: UNK UNK, UNK
     Route: 065
  10. BENADRYL [Concomitant]
     Active Substance: DIPHENHYDRAMINE HYDROCHLORIDE
     Indication: PREMEDICATION
     Dosage: 50 MG, UNK
     Route: 042
  11. TYLENOL [Concomitant]
     Active Substance: ACETAMINOPHEN
     Indication: PREMEDICATION
     Dosage: 1000 MG, UNK
     Route: 048
  12. SOLU-MEDROL [Concomitant]
     Active Substance: METHYLPREDNISOLONE SODIUM SUCCINATE
     Indication: PREMEDICATION
     Dosage: 1000 MG, UNK
     Route: 042
  13. NORMAL SALINE [Concomitant]
     Active Substance: SODIUM CHLORIDE
     Indication: PREMEDICATION
     Dosage: UNK UNK, UNK
     Route: 065
  14. ALEMTUZUMAB [Suspect]
     Active Substance: ALEMTUZUMAB
     Dosage: UNK
     Route: 041
  15. ZOFRAN [Concomitant]
     Active Substance: ONDANSETRON HYDROCHLORIDE
     Indication: PREMEDICATION
     Dosage: 4 MG, UNK
     Route: 042
  16. PHENERGAN [Concomitant]
     Active Substance: PROMETHAZINE HYDROCHLORIDE
     Indication: PREMEDICATION
     Dosage: UNK UNK, UNK
     Route: 065
  17. CLONIDINE. [Concomitant]
     Active Substance: CLONIDINE
     Indication: PREMEDICATION
     Dosage: UNK UNK, UNK
     Route: 048
  18. TYSABRI [Concomitant]
     Active Substance: NATALIZUMAB
     Dosage: 300 MG, Q4W
     Route: 065

REACTIONS (25)
  - Blindness unilateral [Recovering/Resolving]
  - Laboratory test abnormal [Recovered/Resolved]
  - Hypoaesthesia [Unknown]
  - Optic neuritis [Recovering/Resolving]
  - Magnetic resonance imaging abnormal [Not Recovered/Not Resolved]
  - Back pain [Unknown]
  - Mobility decreased [Recovered/Resolved]
  - Gait disturbance [Not Recovered/Not Resolved]
  - Skin burning sensation [Recovered/Resolved]
  - Hypoacusis [Unknown]
  - Balance disorder [Unknown]
  - Fatigue [Not Recovered/Not Resolved]
  - Dizziness [Unknown]
  - Vision blurred [Recovering/Resolving]
  - Swelling [Recovered/Resolved]
  - Contusion [Unknown]
  - Tinnitus [Unknown]
  - Rash [Unknown]
  - Syncope [Recovered/Resolved]
  - Musculoskeletal pain [Recovered/Resolved]
  - Night sweats [Unknown]
  - Muscular weakness [Unknown]
  - Hyperhidrosis [Unknown]
  - Amnesia [Unknown]
  - Condition aggravated [Unknown]

NARRATIVE: CASE EVENT DATE: 2016
